FAERS Safety Report 12248338 (Version 1)
Quarter: 2016Q2

REPORT INFORMATION
  Report Type: Spontaneous
  Country: US (occurrence: US)
  Receive Date: 20160408
  Receipt Date: 20160408
  Transmission Date: 20160815
  Serious: No
  Sender: FDA-Public Use
  Company Number: US-009507513-1604USA000532

PATIENT
  Sex: Female

DRUGS (4)
  1. COZAAR [Suspect]
     Active Substance: LOSARTAN POTASSIUM
  2. AMIODARONE HYDROCHLORIDE. [Suspect]
     Active Substance: AMIODARONE HYDROCHLORIDE
  3. ZOCOR [Suspect]
     Active Substance: SIMVASTATIN
  4. ANASTROZOLE. [Suspect]
     Active Substance: ANASTROZOLE

REACTIONS (1)
  - Drug hypersensitivity [Unknown]
